FAERS Safety Report 9880518 (Version 1)
Quarter: 2014Q1

REPORT INFORMATION
  Report Type: Spontaneous
  Country: GB (occurrence: None)
  Receive Date: 20140205
  Receipt Date: 20140205
  Transmission Date: 20141002
  Serious: Yes (Other)
  Sender: FDA-Public Use
  Company Number: GB-DEXPHARM-20140020

PATIENT
  Age: 48 Year
  Sex: 0

DRUGS (5)
  1. OMEPRAZOLE [Suspect]
  2. ACICLOVIR [Concomitant]
  3. HYLO-TEAR [Concomitant]
  4. LACRI-LUBE [Concomitant]
  5. LANSOPRAZOLE [Concomitant]

REACTIONS (2)
  - Drug interaction [None]
  - Rash [None]
